FAERS Safety Report 6104382-4 (Version None)
Quarter: 2009Q1

REPORT INFORMATION
  Report Type: 
  Country: None (occurrence: None)
  Receive Date: 20090305
  Receipt Date: 20090225
  Transmission Date: 20090719
  Serious: Yes (Other)
  Sender: FDA-Public Use
  Company Number: US-BAXTER-2009BH003358

PATIENT
  Age: 32 Year
  Sex: Female

DRUGS (1)
  1. DIPHENHYDRAMINE HCL [Suspect]
     Indication: DRUG USE FOR UNKNOWN INDICATION
     Route: 042
     Dates: start: 20081027, end: 20081027

REACTIONS (3)
  - CARDIAC ARREST [None]
  - HYPERSENSITIVITY [None]
  - UNRESPONSIVE TO STIMULI [None]
